FAERS Safety Report 5493839-5 (Version None)
Quarter: 2007Q4

REPORT INFORMATION
  Report Type: 
  Country: None (occurrence: None)
  Receive Date: 20071019
  Receipt Date: 20071010
  Transmission Date: 20080405
  Serious: Yes (Hospitalization)
  Sender: FDA-Public Use
  Company Number: 238203K07USA

PATIENT
  Age: 64 Year
  Sex: Female

DRUGS (8)
  1. REBIF [Suspect]
     Indication: MULTIPLE SCLEROSIS
     Dosage: 44 MCG, 3 IN 1 WEEKS, SUBCUTANEOUS
     Route: 058
     Dates: start: 20020603
  2. ADVAIR (SERETIDE) [Concomitant]
  3. PROVENTIL [Concomitant]
  4. SPIRIVA [Concomitant]
  5. AMBIEN CR [Concomitant]
  6. RESTORIL [Concomitant]
  7. PREDNISONE [Concomitant]
  8. WELLBUTRIN [Concomitant]

REACTIONS (1)
  - ATRIAL FIBRILLATION [None]
